FAERS Safety Report 8608697-7 (Version None)
Quarter: 2012Q3

REPORT INFORMATION
  Report Type: 
  Country: None (occurrence: None)
  Receive Date: 20120809
  Receipt Date: 20120809
  Transmission Date: 20120928
  Serious: Yes (Other)
  Sender: FDA-Public Use
  Company Number: None

PATIENT
  Sex: Female

DRUGS (1)
  1. COPAXONE 20 MG TEVA DAILY SQ [Suspect]
     Indication: MULTIPLE SCLEROSIS
     Dosage: 20MG DAILY SQ
     Route: 058
     Dates: start: 20111219

REACTIONS (2)
  - FUNGAL INFECTION [None]
  - BACK PAIN [None]
